FAERS Safety Report 6538387-6 (Version None)
Quarter: 2010Q1

REPORT INFORMATION
  Report Type: 
  Country: None (occurrence: None)
  Receive Date: 20100114
  Receipt Date: 20100106
  Transmission Date: 20100710
  Serious: Yes (Hospitalization)
  Sender: FDA-Public Use
  Company Number: CA-BAXTER-2010BH000618

PATIENT
  Sex: Male

DRUGS (3)
  1. UROMITEXAN BAXTER [Suspect]
     Indication: WAGNER'S DISEASE
     Route: 048
  2. UROMITEXAN BAXTER [Suspect]
     Route: 048
  3. IFOSFAMIDE [Suspect]
     Indication: WAGNER'S DISEASE
     Route: 048

REACTIONS (1)
  - CYSTITIS HAEMORRHAGIC [None]
